FAERS Safety Report 4435882-0 (Version None)
Quarter: 2004Q3

REPORT INFORMATION
  Report Type: 
  Country: None (occurrence: None)
  Receive Date: 20040726
  Receipt Date: 20040416
  Transmission Date: 20050211
  Serious: No
  Sender: FDA-Public Use
  Company Number: USA031152804

PATIENT
  Age: 74 Year
  Sex: Female
  Weight: 80 kg

DRUGS (6)
  1. FORTEO [Suspect]
     Indication: OSTEOPOROSIS
     Dates: start: 20031001
  2. PLAVIX [Concomitant]
  3. ASPIRIN [Concomitant]
  4. BLOOD PRESSURE MEDICATION [Concomitant]
  5. DIURETIC [Concomitant]
  6. CALCIUM [Concomitant]

REACTIONS (8)
  - ASTHENIA [None]
  - FOOD INTOLERANCE [None]
  - INJECTION SITE ERYTHEMA [None]
  - INJECTION SITE HAEMORRHAGE [None]
  - OEDEMA PERIPHERAL [None]
  - PAIN [None]
  - RASH ERYTHEMATOUS [None]
  - SWELLING FACE [None]
